FAERS Safety Report 22019021 (Version 7)
Quarter: 2023Q2

REPORT INFORMATION
  Report Type: Report from Study
  Country: US (occurrence: US)
  Receive Date: 20230222
  Receipt Date: 20230504
  Transmission Date: 20230722
  Serious: Yes (Hospitalization)
  Sender: FDA-Public Use
  Company Number: US-002147023-NVSC2023US040254

PATIENT
  Sex: Female
  Weight: 61.235 kg

DRUGS (3)
  1. TREPROSTINIL [Suspect]
     Active Substance: TREPROSTINIL
     Indication: Pulmonary arterial hypertension
     Dosage: 130 NG/KG/MIN, CONT
     Route: 042
     Dates: start: 20230116
  2. TREPROSTINIL [Suspect]
     Active Substance: TREPROSTINIL
     Dosage: 134 NG/KG/MIN, CONT
     Route: 042
  3. REVATIO [Concomitant]
     Active Substance: SILDENAFIL CITRATE
     Indication: Product used for unknown indication
     Dosage: UNK
     Route: 065

REACTIONS (4)
  - Ulcer [Unknown]
  - Chest pain [Unknown]
  - Dyspnoea [Unknown]
  - Illness [Unknown]
